FAERS Safety Report 5441202-5 (Version None)
Quarter: 2007Q3

REPORT INFORMATION
  Report Type: 
  Country: None (occurrence: None)
  Receive Date: 20070901
  Receipt Date: 20070823
  Transmission Date: 20080115
  Serious: Yes (Other)
  Sender: FDA-Public Use
  Company Number: US-PFIZER INC-2007070661

PATIENT
  Age: 45 Year
  Sex: Male
  Weight: 86.2 kg

DRUGS (5)
  1. CADUET [Suspect]
     Indication: HYPERTENSION
     Dosage: TEXT:5/10 MG
     Route: 048
  2. CADUET [Suspect]
     Indication: BLOOD CHOLESTEROL
  3. VALSARTAN [Concomitant]
  4. OMEGA 3 [Concomitant]
  5. VITAMIN CAP [Concomitant]

REACTIONS (2)
  - SYNOVITIS [None]
  - UPPER EXTREMITY MASS [None]
